FAERS Safety Report 6006396-1 (Version None)
Quarter: 2008Q4

REPORT INFORMATION
  Report Type: 
  Country: None (occurrence: None)
  Receive Date: 20081215
  Receipt Date: 20081202
  Transmission Date: 20090506
  Serious: Yes (Hospitalization)
  Sender: FDA-Public Use
  Company Number: 2008AL012286

PATIENT
  Age: 83 Year
  Sex: Female

DRUGS (10)
  1. MIRTAZAPINE [Suspect]
     Indication: DEPRESSION
     Dosage: 30 MG; QD; PO
     Route: 048
     Dates: start: 20080613, end: 20080914
  2. ACETAMINOPHEN W/ CODEINE [Concomitant]
  3. CONOTRANE [Concomitant]
  4. GAVISCON [Concomitant]
  5. BETAHISTINE [Concomitant]
  6. CALCICHEW [Concomitant]
  7. SIMVASTATIN [Concomitant]
  8. FERROUS SULFATE TAB [Concomitant]
  9. COD-LIVER OIL [Concomitant]
  10. OMEPRAZOLE [Concomitant]

REACTIONS (4)
  - CONVULSION [None]
  - FLUID RETENTION [None]
  - HEADACHE [None]
  - HYPONATRAEMIA [None]
